FAERS Safety Report 21292253 (Version 4)
Quarter: 2024Q2

REPORT INFORMATION
  Report Type: Report from Study
  Country: JP (occurrence: JP)
  Receive Date: 20220905
  Receipt Date: 20240531
  Transmission Date: 20240716
  Serious: Yes (Hospitalization)
  Sender: FDA-Public Use
  Company Number: JP-TAKEDA-2022TJP071801

PATIENT
  Age: 5 Decade
  Sex: Female
  Weight: 42 kg

DRUGS (7)
  1. TEDUGLUTIDE [Suspect]
     Active Substance: TEDUGLUTIDE
     Indication: Short-bowel syndrome
     Dosage: 0.05 MILLIGRAM/KILOGRAM, QD
     Route: 058
     Dates: start: 20210826
  2. TEDUGLUTIDE [Suspect]
     Active Substance: TEDUGLUTIDE
     Indication: Short-bowel syndrome
     Dosage: 0.05 MILLIGRAM/KILOGRAM, QD
     Route: 058
     Dates: start: 20210826
  3. TEDUGLUTIDE [Suspect]
     Active Substance: TEDUGLUTIDE
     Indication: Short-bowel syndrome
     Dosage: 0.05 MILLIGRAM/KILOGRAM, QD
     Route: 058
     Dates: start: 20210826
  4. TEDUGLUTIDE [Suspect]
     Active Substance: TEDUGLUTIDE
     Indication: Short-bowel syndrome
     Dosage: 0.05 MILLIGRAM/KILOGRAM, QD
     Route: 058
     Dates: start: 20210826
  5. HERBALS [Concomitant]
     Active Substance: HERBALS
     Dosage: UNK
     Route: 065
  6. FLOMOX [Concomitant]
     Dosage: UNK
     Route: 065
  7. HALCION [Concomitant]
     Active Substance: TRIAZOLAM
     Dosage: UNK
     Route: 065

REACTIONS (2)
  - Device related infection [Recovered/Resolved]
  - Injection site reaction [Unknown]

NARRATIVE: CASE EVENT DATE: 20220819
